FAERS Safety Report 4940114-0 (Version None)
Quarter: 2006Q1

REPORT INFORMATION
  Report Type: 
  Country: None (occurrence: None)
  Receive Date: 20060310
  Receipt Date: 20060301
  Transmission Date: 20060701
  Serious: Yes (Other)
  Sender: FDA-Public Use
  Company Number: US-ROCHE-438732

PATIENT
  Sex: Male

DRUGS (5)
  1. KLONOPIN LYOPHILIZED WAFERS [Suspect]
     Indication: DRUG USE FOR UNKNOWN INDICATION
     Dosage: REPORTED AS KLONOPIN WAFERS.
     Route: 048
  2. CLONAZEPAM [Suspect]
     Indication: DRUG USE FOR UNKNOWN INDICATION
     Route: 048
  3. LITHIUM [Concomitant]
     Route: 048
  4. PROZAC [Concomitant]
     Route: 048
  5. UNSPECIFIED DRUGS [Concomitant]
     Dosage: REPORTED AS PSYCHIATRIC MEDICATIONS (NOS)

REACTIONS (1)
  - ARRHYTHMIA [None]
